FAERS Safety Report 9960567 (Version 1)
Quarter: 2014Q1

REPORT INFORMATION
  Report Type: Report from Study
  Country: US (occurrence: US)
  Receive Date: 20140305
  Receipt Date: 20140305
  Transmission Date: 20141002
  Serious: No
  Sender: FDA-Public Use
  Company Number: US-ABBVIE-13P-163-1109798-00

PATIENT
  Age: 16 Year
  Sex: Female

DRUGS (2)
  1. HUMIRA [Suspect]
     Indication: CROHN^S DISEASE
     Dates: end: 201211
  2. HUMIRA [Suspect]
     Dates: start: 201211

REACTIONS (4)
  - Drug specific antibody present [Unknown]
  - Drug effect decreased [Unknown]
  - Nausea [Not Recovered/Not Resolved]
  - Muscle spasms [Not Recovered/Not Resolved]
